FAERS Safety Report 19906966 (Version 2)
Quarter: 2021Q4

REPORT INFORMATION
  Report Type: Report from Study
  Country: FR (occurrence: FR)
  Receive Date: 20210930
  Receipt Date: 20211011
  Transmission Date: 20220303
  Serious: Yes (Other)
  Sender: FDA-Public Use
  Company Number: FR-MERCK HEALTHCARE KGAA-9267359

PATIENT
  Sex: Female

DRUGS (4)
  1. CHORIOGONADOTROPIN ALFA [Suspect]
     Active Substance: CHORIOGONADOTROPIN ALFA
     Indication: In vitro fertilisation
     Dosage: MONDAY NIGHT AT 22:30 AND WEDNESDAY MORNING
  2. GONAL-F [Suspect]
     Active Substance: FOLLITROPIN
     Indication: In vitro fertilisation
     Dosage: GONAL 150
  3. ESTRADIOL [Concomitant]
     Active Substance: ESTRADIOL
     Indication: In vitro fertilisation
  4. GANIRELIX ACETATE [Concomitant]
     Active Substance: GANIRELIX ACETATE
     Indication: Fallopian tube obstruction

REACTIONS (8)
  - Pleural effusion [Recovered/Resolved]
  - Musculoskeletal chest pain [Unknown]
  - Adnexa uteri pain [Unknown]
  - Ascites [Unknown]
  - Pulmonary pain [Unknown]
  - Ovarian hyperstimulation syndrome [Unknown]
  - Abdominal distension [Unknown]
  - Abdominal pain [Unknown]
